FAERS Safety Report 4320730-X (Version None)
Quarter: 2004Q1

REPORT INFORMATION
  Report Type: 
  Country: None (occurrence: None)
  Receive Date: 20040315
  Receipt Date: 20040202
  Transmission Date: 20041129
  Serious: No
  Sender: FDA-Public Use
  Company Number: 2004197381US

PATIENT
  Age: 60 Year
  Sex: Male
  Weight: 102 kg

DRUGS (5)
  1. BEXTRA [Suspect]
     Indication: OSTEOARTHRITIS
     Dosage: 20 MG, QD, ORAL
     Route: 048
     Dates: start: 20040101
  2. PROTONIX [Concomitant]
  3. ALLOPURINOL [Concomitant]
  4. HERBAL ONT [Concomitant]
  5. LANOXIN [Concomitant]

REACTIONS (2)
  - ARTHROPATHY [None]
  - PRURITUS [None]
